FAERS Safety Report 5044276-9 (Version None)
Quarter: 2006Q2

REPORT INFORMATION
  Report Type: 
  Country: None (occurrence: None)
  Receive Date: 20060629
  Receipt Date: 20060616
  Transmission Date: 20061013
  Serious: Yes (Hospitalization)
  Sender: FDA-Public Use
  Company Number: 2006076812

PATIENT
  Age: 81 Year
  Sex: Female

DRUGS (7)
  1. ALDACTONE [Suspect]
     Dosage: 25 MG, ORAL
     Route: 048
     Dates: start: 20060127, end: 20060527
  2. OMEPRAZOLE [Suspect]
     Dosage: 20 MG (1 IN 1 D), ORAL
     Route: 048
  3. COAPROVEL (HYDROCHLOROTHIAZIDE, IRBESARTAN) [Suspect]
     Dosage: 300 MG, ORAL
     Route: 048
     Dates: end: 20060527
  4. CORDARONE [Suspect]
     Dosage: 200 MG (1 IN 1 D), ORAL
     Route: 048
  5. EUPRESSYL (URAPIDIL) [Concomitant]
  6. LEXOMIL (BROMAZEPAM) [Concomitant]
  7. ACETAMINOPHEN W/ PROPOXYPHENE HCL [Concomitant]

REACTIONS (5)
  - CONFUSIONAL STATE [None]
  - DRUG INTERACTION [None]
  - HYPONATRAEMIA [None]
  - HYPOTENSION [None]
  - MALAISE [None]
